FAERS Safety Report 6536816-5 (Version None)
Quarter: 2010Q1

REPORT INFORMATION
  Report Type: 
  Country: None (occurrence: None)
  Receive Date: 20100107
  Receipt Date: 20091228
  Transmission Date: 20100710
  Serious: Yes (Other)
  Sender: FDA-Public Use
  Company Number: CERZ-1000971

PATIENT
  Age: 39 Year
  Sex: Female
  Weight: 60.3 kg

DRUGS (1)
  1. CEREZYME [Suspect]
     Indication: GAUCHER'S DISEASE
     Dosage: 3540 U, Q2W, INTRAVENOUS
     Route: 042
     Dates: start: 20080505

REACTIONS (1)
  - PLATELET COUNT DECREASED [None]
